FAERS Safety Report 10429295 (Version 1)
Quarter: 2014Q3

REPORT INFORMATION
  Report Type: Spontaneous
  Country: US (occurrence: None)
  Receive Date: 20140725
  Receipt Date: 20140725
  Transmission Date: 20150326
  Serious: Yes (Hospitalization)
  Sender: FDA-Public Use
  Company Number: 163-50794-13064280

PATIENT
  Age: 68 Year
  Sex: Male
  Weight: 64.05 kg

DRUGS (13)
  1. ACETAMINOPHEN (PARACETAMOL) [Concomitant]
     Active Substance: ACETAMINOPHEN
  2. COREG [Concomitant]
     Active Substance: CARVEDILOL
  3. AMBIEN [Concomitant]
     Active Substance: ZOLPIDEM TARTRATE
  4. FLOMAX (TAMSULOSIN) [Concomitant]
  5. VALACYCLOVIR (VALACICLOVIR HYDROCHLORIDE) [Concomitant]
  6. ESOMEPRAZOLE (ESOMEPRAZOLE) [Concomitant]
     Active Substance: ESOMEPRAZOLE
  7. PREDNISONE (PREDNISONE) [Concomitant]
     Active Substance: PREDNISONE
  8. VORICONAZOLE (VORICONAZOLE) [Concomitant]
     Active Substance: VORICONAZOLE
  9. ONDANSETRON. [Concomitant]
     Active Substance: ONDANSETRON
  10. TRIAMCINOLONE (TRIAMCINOLONE) [Concomitant]
  11. VIDAZA [Suspect]
     Active Substance: AZACITIDINE
     Indication: GRAFT VERSUS HOST DISEASE
     Dates: start: 20130419, end: 20130425
  12. ATOVAQUONE (ATOVAQUONE) [Concomitant]
  13. CITALOPRAM (CITALOPRAM) [Concomitant]
     Active Substance: CITALOPRAM HYDROBROMIDE

REACTIONS (1)
  - Pyrexia [None]

NARRATIVE: CASE EVENT DATE: 20130624
